FAERS Safety Report 4902774-X (Version None)
Quarter: 2006Q1

REPORT INFORMATION
  Report Type: 
  Country: None (occurrence: None)
  Receive Date: 20060207
  Receipt Date: 20060111
  Transmission Date: 20060701
  Serious: Yes (Hospitalization)
  Sender: FDA-Public Use
  Company Number: US-GLAXOSMITHKLINE-A0589046A

PATIENT
  Age: 24 Year
  Sex: Female
  Weight: 44.5 kg

DRUGS (5)
  1. WELLBUTRIN XL [Suspect]
     Indication: DRUG USE FOR UNKNOWN INDICATION
     Route: 048
     Dates: start: 20051201, end: 20060107
  2. SEROQUEL [Concomitant]
  3. LAMICTAL [Concomitant]
  4. POTASSIUM CHLORIDE [Concomitant]
     Dosage: 25MEQ THREE TIMES PER DAY
  5. CLONAZEPAM [Concomitant]

REACTIONS (5)
  - AMNESIA [None]
  - ELECTROENCEPHALOGRAM ABNORMAL [None]
  - GRAND MAL CONVULSION [None]
  - LIPOMA [None]
  - POSTICTAL STATE [None]
